FAERS Safety Report 9496176 (Version 1)
Quarter: 2013Q3

REPORT INFORMATION
  Report Type: Spontaneous
  Country: GB (occurrence: None)
  Receive Date: 20130829
  Receipt Date: 20130829
  Transmission Date: 20140515
  Serious: Yes (Other)
  Sender: FDA-Public Use
  Company Number: AUR-APL-2013-06930

PATIENT
  Age: 67 Year
  Sex: Male
  Weight: 76 kg

DRUGS (9)
  1. GABAPENTIN (GABAPENTIN) [Suspect]
     Indication: PRODUCT USED FOR UNKNOWN INDICATION
     Dates: start: 20130805
  2. ASPIRIN (ACETYLSALICYLIC ACID) [Concomitant]
  3. CARBAMAZEPINE (CARBAMAZEPINE) [Concomitant]
  4. IBUPROFEN (IBUPROFEN) [Concomitant]
  5. LAXIDO (ELECTROLYTES NOS W/ MACROGOL 3350) [Concomitant]
  6. PARACETAMOL (PARACETAMOL) [Concomitant]
  7. PREDNISOLONE (PREDNISOLONE) [Concomitant]
  8. SIMVASTATIN (SIMVASTATIN) [Concomitant]
  9. TRAMADOL (TRAMADOL) [Concomitant]

REACTIONS (1)
  - Erythema [None]
